FAERS Safety Report 5604040-6 (Version None)
Quarter: 2008Q1

REPORT INFORMATION
  Report Type: 
  Country: None (occurrence: None)
  Receive Date: 20080128
  Receipt Date: 20080116
  Transmission Date: 20080703
  Serious: Yes (Life-Threatening, Hospitalization)
  Sender: FDA-Public Use
  Company Number: PHHO2007JP03607

PATIENT
  Age: 73 Year
  Sex: Male

DRUGS (2)
  1. DIPYRIDAMOLE [Concomitant]
     Indication: ANGINA PECTORIS
     Route: 048
     Dates: start: 20021121, end: 20040727
  2. DIOVAN [Suspect]
     Dosage: 40 MG/DAY
     Route: 048
     Dates: start: 20021121, end: 20040727

REACTIONS (4)
  - ACUTE MYOCARDIAL INFARCTION [None]
  - CATHETERISATION CARDIAC [None]
  - CHEST DISCOMFORT [None]
  - CHEST PAIN [None]
